FAERS Safety Report 5084781-2 (Version None)
Quarter: 2006Q3

REPORT INFORMATION
  Report Type: 
  Country: None (occurrence: None)
  Receive Date: 20060815
  Receipt Date: 20060727
  Transmission Date: 20061208
  Serious: Yes (Life-Threatening, Hospitalization)
  Sender: FDA-Public Use
  Company Number: SA200607002907

PATIENT
  Age: 62 Year
  Sex: Female
  Weight: 55 kg

DRUGS (3)
  1. FORTEO [Suspect]
     Indication: OSTEOPOROSIS POSTMENOPAUSAL
     Dosage: 20 UG, DAILY (1/D), SUBCUTANEOUS
     Route: 058
     Dates: start: 20050613, end: 20050616
  2. FORTEO PEN (FORTOE PEN) PEN, DISPOSABLE [Concomitant]
  3. PROZAC [Concomitant]

REACTIONS (6)
  - DYSPNOEA [None]
  - GENERALISED OEDEMA [None]
  - HYPERSENSITIVITY [None]
  - HYPERTENSION [None]
  - PRURITUS [None]
  - TACHYCARDIA [None]
